FAERS Safety Report 14160470 (Version 1)
Quarter: 2017Q4

REPORT INFORMATION
  Report Type: Spontaneous
  Country: US (occurrence: US)
  Receive Date: 20171103
  Receipt Date: 20171103
  Transmission Date: 20180321
  Serious: Yes (Other)
  Sender: FDA-Public Use
  Company Number: None

PATIENT
  Age: 48 Year
  Sex: Male
  Weight: 74.3 kg

DRUGS (2)
  1. ELVITEGRAVIR-COBICISTAT-EMTRICITABINE-TENOFOVIR [Suspect]
     Active Substance: COBICISTAT\ELVITEGRAVIR\EMTRICITABINE\TENOFOVIR
     Indication: HIV INFECTION
     Dosage: 150-150-200-10 (1 TABLET) MG MILLIGRAMS
     Route: 048
     Dates: start: 20170703
  2. BACTRIM [Concomitant]
     Active Substance: SULFAMETHOXAZOLE\TRIMETHOPRIM

REACTIONS (2)
  - Emphysema [None]
  - Hypersensitivity [None]

NARRATIVE: CASE EVENT DATE: 20170707
